FAERS Safety Report 16921005 (Version 1)
Quarter: 2019Q4

REPORT INFORMATION
  Report Type: Spontaneous
  Country: BR (occurrence: BR)
  Receive Date: 20191015
  Receipt Date: 20191015
  Transmission Date: 20200122
  Serious: Yes (Hospitalization, Other)
  Sender: FDA-Public Use
  Company Number: BR-TOPROL ACQUISITION LLC-2019-TOP-001255

PATIENT
  Age: 56 Year
  Sex: Male

DRUGS (3)
  1. ACERTIL                            /00790702/ [Concomitant]
     Active Substance: PERINDOPRIL ERBUMINE
     Dosage: UNK
  2. VICTRIX                            /00661201/ [Concomitant]
     Dosage: UNK
  3. METOPROLOL SUCCINATE. [Suspect]
     Active Substance: METOPROLOL SUCCINATE
     Indication: HYPERTENSION
     Dosage: 50 MG BID
     Route: 048
     Dates: start: 2009

REACTIONS (7)
  - Hypoaesthesia oral [Not Recovered/Not Resolved]
  - Gingival discomfort [Not Recovered/Not Resolved]
  - Oral discomfort [Not Recovered/Not Resolved]
  - Off label use [Not Recovered/Not Resolved]
  - Dysgeusia [Not Recovered/Not Resolved]
  - Salivary gland calculus [Not Recovered/Not Resolved]
  - Blood pressure increased [Unknown]

NARRATIVE: CASE EVENT DATE: 200905
